FAERS Safety Report 15530440 (Version 1)
Quarter: 2018Q4

REPORT INFORMATION
  Report Type: Spontaneous
  Country: FR (occurrence: FR)
  Receive Date: 20181018
  Receipt Date: 20181018
  Transmission Date: 20190205
  Serious: Yes (Other)
  Sender: FDA-Public Use
  Company Number: FR-PFIZER INC-2018410866

PATIENT

DRUGS (2)
  1. LEXOMIL ROCHE [Suspect]
     Active Substance: BROMAZEPAM
     Dosage: UNK
     Route: 048
  2. ZOLOFT [Suspect]
     Active Substance: SERTRALINE HYDROCHLORIDE
     Dosage: UNK
     Route: 048

REACTIONS (3)
  - Drug abuse [Recovering/Resolving]
  - Drug dependence [Recovering/Resolving]
  - Prescription form tampering [Recovering/Resolving]
